FAERS Safety Report 17071059 (Version 1)
Quarter: 2019Q4

REPORT INFORMATION
  Report Type: Spontaneous
  Country: US (occurrence: US)
  Receive Date: 20191125
  Receipt Date: 20191125
  Transmission Date: 20200122
  Serious: No
  Sender: FDA-Public Use
  Company Number: US-MYLANLABS-2019M1107892

PATIENT
  Sex: Female
  Weight: 68 kg

DRUGS (1)
  1. ALPRAZOLAM TABLETS, USP [Suspect]
     Active Substance: ALPRAZOLAM
     Indication: ANXIETY
     Dosage: UNK
     Route: 048
     Dates: start: 201907

REACTIONS (5)
  - Dermatitis [Recovered/Resolved]
  - Alopecia [Not Recovered/Not Resolved]
  - Recalled product administered [Unknown]
  - Furuncle [Recovered/Resolved]
  - Rash pustular [Unknown]

NARRATIVE: CASE EVENT DATE: 20190802
